FAERS Safety Report 10654441 (Version 1)
Quarter: 2014Q4

REPORT INFORMATION
  Report Type: Spontaneous
  Country: JP (occurrence: JP)
  Receive Date: 20141216
  Receipt Date: 20141216
  Transmission Date: 20150529
  Serious: Yes (Other)
  Sender: FDA-Public Use
  Company Number: JP-SA-2014SA173037

PATIENT

DRUGS (2)
  1. DOGMATYL [Suspect]
     Active Substance: SULPIRIDE
     Indication: SUICIDE ATTEMPT
     Dosage: STRENGTH: 50 MG
     Route: 048
     Dates: start: 201411
  2. MYSLEE [Suspect]
     Active Substance: ZOLPIDEM TARTRATE
     Dosage: STRENGTH; 10 MG TABLET
     Route: 048
     Dates: start: 201411

REACTIONS (4)
  - Suicide attempt [Unknown]
  - Road traffic accident [Unknown]
  - Intentional overdose [Unknown]
  - Depressed level of consciousness [Unknown]

NARRATIVE: CASE EVENT DATE: 201411
